FAERS Safety Report 7716026-6 (Version None)
Quarter: 2011Q3

REPORT INFORMATION
  Report Type: 
  Country: None (occurrence: None)
  Receive Date: 20110823
  Receipt Date: 20110811
  Transmission Date: 20111222
  Serious: Yes (Hospitalization)
  Sender: FDA-Public Use
  Company Number: 2011080107

PATIENT
  Age: 43 Year
  Sex: Female

DRUGS (1)
  1. MEPROBAMATE [Suspect]
     Indication: SUICIDE ATTEMPT
     Dosage: 60 G (150 TABLET), ORAL
     Route: 048

REACTIONS (11)
  - BLOOD PRESSURE DECREASED [None]
  - POISONING [None]
  - PANCREATITIS ACUTE [None]
  - EXTRAPYRAMIDAL DISORDER [None]
  - RESPIRATORY DEPRESSION [None]
  - INTENTIONAL OVERDOSE [None]
  - LOSS OF CONSCIOUSNESS [None]
  - CARDIOVASCULAR INSUFFICIENCY [None]
  - HYPOTHERMIA [None]
  - LEUKOCYTOSIS [None]
  - TOXICITY TO VARIOUS AGENTS [None]
